FAERS Safety Report 8238090-0 (Version None)
Quarter: 2012Q1

REPORT INFORMATION
  Report Type: 
  Country: None (occurrence: None)
  Receive Date: 20120327
  Receipt Date: 20120322
  Transmission Date: 20120608
  Serious: Yes (Other)
  Sender: FDA-Public Use
  Company Number: SE-GLAXOSMITHKLINE-B0790696A

PATIENT
  Sex: Male

DRUGS (1)
  1. MALARONE [Suspect]
     Indication: MALARIA PROPHYLAXIS
     Route: 065
     Dates: end: 20120116

REACTIONS (5)
  - INSOMNIA [None]
  - PANIC ATTACK [None]
  - HALLUCINATION [None]
  - ACUTE PSYCHOSIS [None]
  - CRYING [None]
